FAERS Safety Report 4870351-5 (Version None)
Quarter: 2006Q1

REPORT INFORMATION
  Report Type: 
  Country: None (occurrence: None)
  Receive Date: 20060103
  Receipt Date: 20050512
  Transmission Date: 20060701
  Serious: Yes (Disabling)
  Sender: FDA-Public Use
  Company Number: JP-BOEHRINGER INGELHEIM PHARMACEUTICALS, INC.-2005-BP-08385NB

PATIENT
  Sex: Female
  Weight: 45 kg

DRUGS (7)
  1. MICARDIS [Suspect]
     Indication: ESSENTIAL HYPERTENSION
     Route: 048
     Dates: start: 20031214, end: 20041116
  2. MEVALOTIN [Concomitant]
     Indication: HYPERLIPIDAEMIA
     Route: 048
     Dates: start: 19991117
  3. ADALAT [Concomitant]
     Indication: ESSENTIAL HYPERTENSION
     Route: 048
     Dates: start: 20030215
  4. ASPIRIN [Concomitant]
     Indication: CEREBRAL INFARCTION
     Route: 048
     Dates: start: 20021012
  5. MEXITIL [Concomitant]
     Indication: HEMIPLEGIA
     Route: 048
     Dates: start: 20020514
  6. EUGLUCON [Concomitant]
     Indication: DIABETES MELLITUS
     Route: 048
     Dates: start: 20030927
  7. RIVOTRIL [Concomitant]
     Indication: CONVULSION
     Route: 048
     Dates: start: 19991130

REACTIONS (2)
  - CEREBRAL INFARCTION [None]
  - CONSTIPATION [None]
